FAERS Safety Report 6815537-5 (Version None)
Quarter: 2010Q3

REPORT INFORMATION
  Report Type: 
  Country: None (occurrence: None)
  Receive Date: 20100702
  Receipt Date: 20100625
  Transmission Date: 20110219
  Serious: Yes (Disabling)
  Sender: FDA-Public Use
  Company Number: GB-ABBOTT-10P-167-0653751-00

PATIENT
  Age: 88 Year
  Sex: Male

DRUGS (2)
  1. EPILIM CHRONO [Suspect]
     Indication: PRODUCT USED FOR UNKNOWN INDICATION
  2. EPILIM CHRONO [Suspect]

REACTIONS (9)
  - ABASIA [None]
  - ASTHENIA [None]
  - DEPRESSION [None]
  - INCONTINENCE [None]
  - MALAISE [None]
  - PREMATURE AGEING [None]
  - TREMOR [None]
  - UNDERDOSE [None]
  - WEIGHT DECREASED [None]
